FAERS Safety Report 5110961-3 (Version None)
Quarter: 2006Q3

REPORT INFORMATION
  Report Type: 
  Country: None (occurrence: None)
  Receive Date: 20060922
  Receipt Date: 20060913
  Transmission Date: 20061208
  Serious: Yes (Hospitalization)
  Sender: FDA-Public Use
  Company Number: US-JNJFOC-20060903366

PATIENT
  Sex: Female
  Weight: 90.72 kg

DRUGS (6)
  1. DURAGESIC-100 [Suspect]
     Indication: TRIGEMINAL NEURALGIA
     Route: 062
  2. DURAGESIC-100 [Suspect]
     Indication: MIGRAINE
     Route: 062
  3. FENTANYL TRANSDERMAL SYSTEM [Suspect]
     Indication: TRIGEMINAL NEURALGIA
     Route: 062
  4. FENTANYL TRANSDERMAL SYSTEM [Suspect]
     Indication: MIGRAINE
     Route: 062
  5. COUMADIN [Suspect]
     Route: 048
  6. COUMADIN [Suspect]
     Indication: KNEE ARTHROPLASTY
     Route: 048

REACTIONS (3)
  - FALL [None]
  - KNEE ARTHROPLASTY [None]
  - URTICARIA [None]
